FAERS Safety Report 13679300 (Version 1)
Quarter: 2017Q2

REPORT INFORMATION
  Report Type: Spontaneous
  Country: US (occurrence: US)
  Receive Date: 20170622
  Receipt Date: 20170622
  Transmission Date: 20170830
  Serious: No
  Sender: FDA-Public Use
  Company Number: US-HAEMONETICS CORP-2022407

PATIENT
  Age: 55 Year
  Sex: Male
  Weight: 68.64 kg

DRUGS (1)
  1. HAEMONETICS ANTICOAGULANT SODIUM CITRATE [Suspect]
     Active Substance: TRISODIUM CITRATE DIHYDRATE
     Indication: APHERESIS
     Route: 042
     Dates: start: 20161229, end: 20161229

REACTIONS (4)
  - Hypoaesthesia [None]
  - Citrate toxicity [Recovered/Resolved]
  - Dizziness [None]
  - Paraesthesia [None]

NARRATIVE: CASE EVENT DATE: 20161229
